FAERS Safety Report 16806655 (Version 1)
Quarter: 2019Q3

REPORT INFORMATION
  Report Type: Spontaneous
  Country: GB (occurrence: GB)
  Receive Date: 20190913
  Receipt Date: 20190913
  Transmission Date: 20191005
  Serious: Yes (Other)
  Sender: FDA-Public Use
  Company Number: GB-MYLANLABS-2019M1084900

PATIENT
  Age: 57 Year
  Sex: Female
  Weight: 67 kg

DRUGS (11)
  1. DOCUSATE SODIUM. [Concomitant]
     Active Substance: DOCUSATE SODIUM
     Dosage: 4 DOSAGE FORM, QD
     Dates: start: 20190318, end: 20190326
  2. FLUCONAZOLE. [Concomitant]
     Active Substance: FLUCONAZOLE
     Dosage: USE AS DIRECTED
     Dates: start: 20190115, end: 20190122
  3. CODEINE PHOSPHATE [Concomitant]
     Active Substance: CODEINE PHOSPHATE
     Dosage: UNK UNK, PRN TAKE ONE OR 2 4 TIMES A DAY WHEN REQUIRED
     Dates: start: 20190318, end: 20190326
  4. ACETYLSALICYLIC ACID [Concomitant]
     Active Substance: ASPIRIN
     Dosage: 1 DOSAGE FORM, QD
     Dates: start: 20190325
  5. MEFENAMIC ACID. [Concomitant]
     Active Substance: MEFENAMIC ACID
     Dosage: 3 DOSAGE FORM, QD STARTING ON FIRST DAY OF MENSTRUATION
     Dates: start: 20180815, end: 20190218
  6. OMEPRAZOLE. [Concomitant]
     Active Substance: OMEPRAZOLE
     Dosage: 1 DOSAGE FORM, PRN OD AS REQUIRED
     Dates: start: 20180815
  7. CLOTRIMAZOLE. [Concomitant]
     Active Substance: CLOTRIMAZOLE
     Dosage: USE AS DIRECTED
     Dates: start: 20190325
  8. CLOPIDOGREL [Suspect]
     Active Substance: CLOPIDOGREL BISULFATE
     Indication: PRODUCT USED FOR UNKNOWN INDICATION
     Dosage: 75 MILLIGRAM, QD
     Dates: start: 20190318
  9. PARACETAMOL [Concomitant]
     Active Substance: ACETAMINOPHEN
     Dosage: 2 DOSAGE FORM, PRN TAKE TWO 4 TIMES/DAY WHEN REQUIRED
     Dates: start: 20190318, end: 20190326
  10. CO-AMOXICLAV                       /01000301/ [Concomitant]
     Active Substance: AMOXICILLIN\CLAVULANATE POTASSIUM
     Dosage: 3 DOSAGE FORM, QD
     Dates: start: 20190108, end: 20190115
  11. DARIFENACIN. [Concomitant]
     Active Substance: DARIFENACIN
     Dosage: 1 DOSAGE FORM, QD
     Dates: start: 20180815

REACTIONS (1)
  - Throat tightness [Recovered/Resolved]
